FAERS Safety Report 15492650 (Version 1)
Quarter: 2018Q4

REPORT INFORMATION
  Report Type: Spontaneous
  Country: FR (occurrence: FR)
  Receive Date: 20181012
  Receipt Date: 20181012
  Transmission Date: 20190205
  Serious: Yes (Hospitalization)
  Sender: FDA-Public Use
  Company Number: FR-IPSEN BIOPHARMACEUTICALS, INC.-2018-15336

PATIENT
  Age: 83 Year
  Sex: Male
  Weight: 93 kg

DRUGS (7)
  1. TRIPTORELIN NOS [Suspect]
     Active Substance: TRIPTORELIN
     Indication: PROSTATE CANCER
     Route: 042
     Dates: start: 201612, end: 20180830
  2. JANUVIA [Suspect]
     Active Substance: SITAGLIPTIN PHOSPHATE
     Indication: TYPE 2 DIABETES MELLITUS
     Route: 048
     Dates: end: 20180830
  3. LOPRESSOR [Concomitant]
     Active Substance: METOPROLOL TARTRATE
  4. DILTIAZEM. [Concomitant]
     Active Substance: DILTIAZEM
  5. GLICLAZIDE [Concomitant]
     Active Substance: GLICLAZIDE
  6. BIPRETERAX [Suspect]
     Active Substance: INDAPAMIDE\PERINDOPRIL
     Indication: HYPERTENSION
     Dosage: 1.25 MG COATED TABLET
     Route: 048
     Dates: end: 20180830
  7. KARDEGIC [Concomitant]
     Active Substance: ASPIRIN DL-LYSINE

REACTIONS (1)
  - Pemphigoid [Recovering/Resolving]

NARRATIVE: CASE EVENT DATE: 201806
